FAERS Safety Report 9790054 (Version 1)
Quarter: 2013Q4

REPORT INFORMATION
  Report Type: Spontaneous
  Country: CH (occurrence: CH)
  Receive Date: 20131231
  Receipt Date: 20131231
  Transmission Date: 20140711
  Serious: Yes (Death)
  Sender: FDA-Public Use
  Company Number: CH-JNJFOC-20131213452

PATIENT
  Age: 52 Year
  Sex: Male
  Weight: 50 kg

DRUGS (1)
  1. ITRACONAZOLE [Suspect]
     Indication: HISTOPLASMOSIS
     Route: 048

REACTIONS (1)
  - Cardiomyopathy [Fatal]
